FAERS Safety Report 20682339 (Version 2)
Quarter: 2022Q2

REPORT INFORMATION
  Report Type: Report from Study
  Country: CA (occurrence: CA)
  Receive Date: 20220407
  Receipt Date: 20220520
  Transmission Date: 20220721
  Serious: Yes (Other)
  Sender: FDA-Public Use
  Company Number: CA-JNJFOC-20220227716

PATIENT
  Age: 9 Year
  Sex: Female
  Weight: 22 kg

DRUGS (1)
  1. REMICADE [Suspect]
     Active Substance: INFLIXIMAB
     Indication: Crohn^s disease
     Dosage: PATIENT RECEIVED 07TH REMICADE INFUSION ON 09-FEB-2022. PATIENT RECEIVED 10TH REMICADE INFUSION ON 0
     Route: 042
     Dates: start: 20200825, end: 202204

REACTIONS (4)
  - Haematochezia [Not Recovered/Not Resolved]
  - Insomnia [Recovered/Resolved]
  - Abdominal pain [Not Recovered/Not Resolved]
  - Frequent bowel movements [Not Recovered/Not Resolved]

NARRATIVE: CASE EVENT DATE: 20220206
